FAERS Safety Report 6558432-1 (Version None)
Quarter: 2010Q1

REPORT INFORMATION
  Report Type: 
  Country: None (occurrence: None)
  Receive Date: 20100128
  Receipt Date: 20100128
  Transmission Date: 20100710
  Serious: Yes (Other)
  Sender: FDA-Public Use
  Company Number: None

PATIENT
  Age: 86 Year
  Sex: Female
  Weight: 83.9154 kg

DRUGS (1)
  1. CARVEDILOL [Suspect]
     Indication: HYPERTENSION
     Dosage: 12.5 MG 1 TABLE TWICE/DAY BUCCAL
     Route: 002
     Dates: start: 20090501, end: 20100125

REACTIONS (2)
  - PSORIASIS [None]
  - RASH [None]
